FAERS Safety Report 5385264-2 (Version None)
Quarter: 2007Q3

REPORT INFORMATION
  Report Type: 
  Country: None (occurrence: None)
  Receive Date: 20070709
  Receipt Date: 20070709
  Transmission Date: 20080115
  Serious: Yes (Hospitalization)
  Sender: FDA-Public Use
  Company Number: None

PATIENT
  Sex: Male
  Weight: 62.6 kg

DRUGS (1)
  1. CISPLATIN [Suspect]
     Dosage: 50 MG

REACTIONS (6)
  - BLOOD POTASSIUM ABNORMAL [None]
  - DEHYDRATION [None]
  - FATIGUE [None]
  - INADEQUATE ANALGESIA [None]
  - MALAISE [None]
  - PYREXIA [None]
